FAERS Safety Report 13953977 (Version 1)
Quarter: 2017Q3

REPORT INFORMATION
  Report Type: Spontaneous
  Country: CN (occurrence: CN)
  Receive Date: 20170911
  Receipt Date: 20170911
  Transmission Date: 20171128
  Serious: Yes (Other)
  Sender: FDA-Public Use
  Company Number: CN-ELI_LILLY_AND_COMPANY-CN201708011861

PATIENT
  Sex: Female
  Weight: 50 kg

DRUGS (1)
  1. ZYPREXA [Suspect]
     Active Substance: OLANZAPINE
     Indication: MENTAL DISORDER
     Dosage: 5 MG, DAILY
     Route: 048
     Dates: start: 20170524, end: 20170528

REACTIONS (1)
  - White blood cell count decreased [Recovered/Resolved]
